FAERS Safety Report 9054168 (Version 2)
Quarter: 2013Q2

REPORT INFORMATION
  Report Type: Report from Study
  Country: US (occurrence: NL)
  Receive Date: 20130208
  Receipt Date: 20130405
  Transmission Date: 20140414
  Serious: Yes (Hospitalization)
  Sender: FDA-Public Use
  Company Number: NL-PFIZER INC-2013049964

PATIENT
  Age: 53 Year
  Sex: Male
  Weight: 70.6 kg

DRUGS (8)
  1. GENOTROPIN [Suspect]
     Dosage: 0.1 MG, 1X/DAY,7 INJECTIONS/WEEK
     Route: 058
     Dates: start: 20040818
  2. CORTISONE ACETATE [Concomitant]
     Indication: BLOOD CORTICOTROPHIN DECREASED
     Dosage: UNK
     Dates: start: 19961101
  3. DESMOPRESSIN [Concomitant]
     Indication: BLOOD ANTIDIURETIC HORMONE DECREASED
     Dosage: UNK
     Dates: start: 19971112
  4. THYRAX [Concomitant]
     Indication: BLOOD THYROID STIMULATING HORMONE DECREASED
     Dosage: UNK
     Dates: start: 19980525
  5. THYRAX [Concomitant]
     Indication: PRIMARY HYPOTHYROIDISM
  6. ANDROGEL [Concomitant]
     Indication: LUTEINISING HORMONE DEFICIENCY
     Dosage: UNK
     Dates: start: 20050428
  7. ANDROGEL [Concomitant]
     Indication: FOLLICLE-STIMULATING HORMONE DEFICIENCY
  8. ANDROGEL [Concomitant]
     Indication: HYPOGONADISM MALE

REACTIONS (1)
  - Pituitary tumour benign [Unknown]
